FAERS Safety Report 9200206 (Version 1)
Quarter: 2013Q1

REPORT INFORMATION
  Report Type: Other
  Country: CH (occurrence: CH)
  Receive Date: 20130329
  Receipt Date: 20130329
  Transmission Date: 20140127
  Serious: Yes (Other)
  Sender: FDA-Public Use
  Company Number: CH-BRISTOL-MYERS SQUIBB COMPANY-18730309

PATIENT
  Sex: 0

DRUGS (1)
  1. PRAVASTATIN SODIUM [Suspect]
     Route: 064

REACTIONS (1)
  - Congenital choroid plexus cyst [Unknown]
